FAERS Safety Report 8916728 (Version 1)
Quarter: 2012Q4

REPORT INFORMATION
  Report Type: 
  Country: US (occurrence: US)
  Receive Date: 20121120
  Receipt Date: 20121120
  Transmission Date: 20130627
  Serious: Yes (Other)
  Sender: FDA-Public Use
  Company Number: US-PFIZER INC-2012287198

PATIENT
  Age: 15 Year
  Sex: Female

DRUGS (5)
  1. DEPO-PROVERA [Suspect]
     Dosage: UNK
     Dates: start: 20121113
  2. Z-PACK-ZITHROM [Suspect]
     Dosage: UNK
  3. PHENERGAN [Suspect]
     Dosage: UNK
  4. CODEINE [Suspect]
     Dosage: UNK
  5. CONCERTA [Concomitant]
     Indication: ATTENTION DEFICIT-HYPERACTIVITY DISORDER
     Dosage: UNK

REACTIONS (8)
  - Psychotic disorder [Unknown]
  - Memory impairment [Unknown]
  - Speech disorder [Unknown]
  - Skin papilloma [Unknown]
  - Loss of consciousness [Unknown]
  - Feeling abnormal [Unknown]
  - Hunger [Unknown]
  - Dry mouth [Unknown]
